FAERS Safety Report 24936384 (Version 1)
Quarter: 2025Q1

REPORT INFORMATION
  Report Type: Spontaneous
  Country: US (occurrence: None)
  Receive Date: 20250206
  Receipt Date: 20250206
  Transmission Date: 20250408
  Serious: Yes (Hospitalization)
  Sender: FDA-CTU
  Company Number: None

PATIENT
  Age: 51 Year
  Sex: Male
  Weight: 99.79 kg

DRUGS (2)
  1. FLUOROURACIL [Suspect]
     Active Substance: FLUOROURACIL
     Dates: end: 20240724
  2. LEUCOVORIN CALCIUM [Suspect]
     Active Substance: LEUCOVORIN CALCIUM
     Dates: end: 20240724

REACTIONS (7)
  - Hydronephrosis [None]
  - Urinary tract infection [None]
  - Leukocytosis [None]
  - Hydroureter [None]
  - Ureteric perforation [None]
  - Clostridium difficile colitis [None]
  - Norovirus infection [None]

NARRATIVE: CASE EVENT DATE: 20250111
